FAERS Safety Report 13109539 (Version 1)
Quarter: 2017Q1

REPORT INFORMATION
  Report Type: Spontaneous
  Country: US (occurrence: US)
  Receive Date: 20170112
  Receipt Date: 20170112
  Transmission Date: 20170428
  Serious: Yes (Other)
  Sender: FDA-Public Use
  Company Number: US-SA-2017SA003527

PATIENT
  Age: 66 Year
  Sex: Female

DRUGS (2)
  1. LANTUS SOLOSTAR [Suspect]
     Active Substance: INSULIN GLARGINE
     Indication: TYPE 2 DIABETES MELLITUS
     Dosage: DOSE:DOSAGE IS 4-6 UNITS IN THE MORNING, 8 UNITS AT NIGHTS
     Route: 065
  2. SOLOSTAR [Concomitant]
     Active Substance: DEVICE
     Indication: TYPE 2 DIABETES MELLITUS

REACTIONS (6)
  - Blindness unilateral [Unknown]
  - Condition aggravated [Unknown]
  - Hypoacusis [Unknown]
  - Product use issue [Unknown]
  - Renal disorder [Unknown]
  - Calcinosis [Unknown]
